FAERS Safety Report 11060068 (Version 1)
Quarter: 2015Q2

REPORT INFORMATION
  Report Type: Report from Study
  Country: US (occurrence: US)
  Receive Date: 20150423
  Receipt Date: 20150423
  Transmission Date: 20150821
  Serious: Yes (Hospitalization)
  Sender: FDA-Public Use
  Company Number: PHHO2015US002076

PATIENT
  Age: 5 Year
  Sex: Male
  Weight: 19 kg

DRUGS (5)
  1. PREDNISONE. [Concomitant]
     Active Substance: PREDNISONE
     Indication: RENAL TRANSPLANT
     Dosage: 8 MG, QD
     Route: 065
     Dates: start: 20150116
  2. NO TREATMENT RECEIVED [Suspect]
     Active Substance: UNSPECIFIED INGREDIENT
     Indication: RENAL TRANSPLANT
     Dosage: NO TREATMENT
     Route: 065
  3. AMOXICILLIN TABLETS [Suspect]
     Active Substance: AMOXICILLIN
     Indication: PHARYNGITIS STREPTOCOCCAL
     Dosage: 440 MG, TID
     Route: 065
     Dates: start: 20150411
  4. CELLCEPT [Concomitant]
     Active Substance: MYCOPHENOLATE MOFETIL\MYCOPHENOLATE MOFETIL HYDROCHLORIDE
     Indication: RENAL TRANSPLANT
     Dosage: 260 MG, BID
     Route: 065
     Dates: start: 20150116
  5. TACROLIMUS. [Concomitant]
     Active Substance: TACROLIMUS
     Indication: RENAL TRANSPLANT
     Dosage: 3 MG, BID
     Route: 065
     Dates: start: 20150118

REACTIONS (5)
  - Hyponatraemia [Recovering/Resolving]
  - Diarrhoea [None]
  - Concomitant disease progression [None]
  - Blood creatinine increased [None]
  - Dehydration [Recovered/Resolved]

NARRATIVE: CASE EVENT DATE: 20150209
